FAERS Safety Report 7102430 (Version 4)
Quarter: 2013Q3

REPORT INFORMATION
  Report Type: Spontaneous
  Country: US (occurrence: US)
  Receive Date: 20090901
  Receipt Date: 20130820
  Transmission Date: 20140515
  Serious: Yes (Life-Threatening, Hospitalization, Other)
  Sender: FDA-Public Use
  Company Number: US-JNJFOC-20090900067

PATIENT
  Age: 35 Year
  Sex: 0

DRUGS (2)
  1. FENTANYL [Suspect]
     Indication: DRUG ABUSE
     Route: 048
  2. HYDROCODONE/ACETAMINOPHEN [Suspect]
     Indication: PRODUCT USED FOR UNKNOWN INDICATION
     Dosage: 2 TABS

REACTIONS (9)
  - Respiratory failure [Recovering/Resolving]
  - Toxicity to various agents [Recovering/Resolving]
  - Convulsion [Recovering/Resolving]
  - Troponin increased [Unknown]
  - Hypotension [Unknown]
  - Intentional drug misuse [Unknown]
  - Oxygen saturation decreased [Unknown]
  - Drug abuse [Unknown]
  - Lethargy [Recovering/Resolving]
